FAERS Safety Report 10814038 (Version 1)
Quarter: 2015Q1

REPORT INFORMATION
  Report Type: Report from Study
  Country: US (occurrence: US)
  Receive Date: 20150218
  Receipt Date: 20150218
  Transmission Date: 20150721
  Serious: No
  Sender: FDA-Public Use
  Company Number: US-ABBVIE-14K-163-1280992-00

PATIENT
  Age: 71 Year
  Sex: Female

DRUGS (6)
  1. UNKNOWN PILL [Concomitant]
     Active Substance: UNSPECIFIED INGREDIENT
     Indication: HYPERTENSION
     Dosage: HAD NO CLUE
  2. HUMIRA [Suspect]
     Active Substance: ADALIMUMAB
     Dates: start: 20140827
  3. UNKNOWN PILL [Concomitant]
     Active Substance: UNSPECIFIED INGREDIENT
     Indication: HYPERTENSION
     Dosage: HAD NO CLUE
  4. UNKNOWN PILL [Concomitant]
     Active Substance: UNSPECIFIED INGREDIENT
     Indication: HYPERTENSION
     Dosage: HAD NO CLUE
  5. HUMIRA [Suspect]
     Active Substance: ADALIMUMAB
     Indication: PSORIASIS
     Dates: start: 20140813, end: 20140813
  6. HUMIRA [Suspect]
     Active Substance: ADALIMUMAB
     Dates: start: 20140820, end: 20140820

REACTIONS (1)
  - Inappropriate schedule of drug administration [Unknown]

NARRATIVE: CASE EVENT DATE: 20140827
